FAERS Safety Report 9733117 (Version 1)
Quarter: 2013Q4

REPORT INFORMATION
  Report Type: Report from Study
  Country: DE (occurrence: DE)
  Receive Date: 20131205
  Receipt Date: 20131205
  Transmission Date: 20140711
  Serious: Yes (Other)
  Sender: FDA-Public Use
  Company Number: CHPA2013DE017881

PATIENT
  Age: 61 Year
  Sex: Male
  Weight: 85 kg

DRUGS (3)
  1. NICOTINELL TTS [Suspect]
     Indication: PARKINSON^S DISEASE
     Dosage: 28 MG, QD
     Route: 062
     Dates: start: 20131108, end: 20131115
  2. ASS [Concomitant]
     Dosage: 100 MG, QD
     Dates: start: 20090928
  3. INEGY [Concomitant]
     Dosage: 10 MG, QD
     Dates: start: 2009

REACTIONS (2)
  - Syncope [Recovered/Resolved]
  - Dermatitis allergic [Recovered/Resolved]
